FAERS Safety Report 9013910 (Version 1)
Quarter: 2013Q1

REPORT INFORMATION
  Report Type: Spontaneous
  Country: US (occurrence: None)
  Receive Date: 20130109
  Receipt Date: 20130109
  Transmission Date: 20140127
  Serious: Yes (Other)
  Sender: FDA-Public Use
  Company Number: None

PATIENT
  Age: 63 Year
  Sex: Male
  Weight: 90.72 kg

DRUGS (1)
  1. SYNTHROID, 200MCG, ABBOTT [Suspect]
     Dates: start: 20061101, end: 20121015

REACTIONS (5)
  - Palpitations [None]
  - Heart rate irregular [None]
  - Ventricular extrasystoles [None]
  - Disorientation [None]
  - Dizziness [None]
